FAERS Safety Report 25022959 (Version 1)
Quarter: 2025Q1

REPORT INFORMATION
  Report Type: Spontaneous
  Country: US (occurrence: None)
  Receive Date: 20250228
  Receipt Date: 20250228
  Transmission Date: 20250408
  Serious: No
  Sender: FDA-CTU
  Company Number: None

PATIENT
  Age: 22 Year
  Sex: Male
  Weight: 76.8 kg

DRUGS (3)
  1. FLUDARABINE PHOSPHATE [Suspect]
     Active Substance: FLUDARABINE PHOSPHATE
     Dates: end: 20250212
  2. MELPHALAN [Suspect]
     Active Substance: MELPHALAN
     Dates: end: 20250212
  3. THIOTEPA [Suspect]
     Active Substance: THIOTEPA
     Dates: end: 20250211

REACTIONS (6)
  - Septic shock [None]
  - Tachycardia [None]
  - Syncope [None]
  - Alpha haemolytic streptococcal infection [None]
  - Mucosal inflammation [None]
  - Neutropenia [None]

NARRATIVE: CASE EVENT DATE: 20250223
